APPROVED DRUG PRODUCT: NEO-CORT-DOME
Active Ingredient: HYDROCORTISONE; NEOMYCIN SULFATE
Strength: 0.5%;EQ 3.5MG BASE/GM
Dosage Form/Route: CREAM;TOPICAL
Application: N050237 | Product #006
Applicant: BAYER PHARMACEUTICALS CORP
Approved: Jun 5, 1984 | RLD: No | RS: No | Type: DISCN